FAERS Safety Report 17495601 (Version 1)
Quarter: 2020Q1

REPORT INFORMATION
  Report Type: Spontaneous
  Country: US (occurrence: US)
  Receive Date: 20200303
  Receipt Date: 20200303
  Transmission Date: 20200409
  Serious: No
  Sender: FDA-Public Use
  Company Number: US-BIODELIVERY SCIENCES INTERNATIONAL-2020BDSI0091

PATIENT
  Age: 53 Year
  Sex: Female
  Weight: 59.93 kg

DRUGS (10)
  1. BUPRENORPHINE. [Suspect]
     Active Substance: BUPRENORPHINE
     Route: 002
  2. BUPRENORPHINE. [Suspect]
     Active Substance: BUPRENORPHINE
     Route: 002
     Dates: end: 20200203
  3. PREGABALIN. [Concomitant]
     Active Substance: PREGABALIN
     Indication: PRODUCT USED FOR UNKNOWN INDICATION
     Dosage: 1 CAPSULE IN THE MORNING, 2 CAPSULES IN THE AFTERNOON
     Route: 048
  4. IBUPROFEN. [Concomitant]
     Active Substance: IBUPROFEN
     Indication: PRODUCT USED FOR UNKNOWN INDICATION
     Route: 048
  5. BACLOFEN. [Concomitant]
     Active Substance: BACLOFEN
     Indication: MUSCLE RELAXANT THERAPY
     Dosage: UP TO 3 TIMES A DAY
     Route: 048
  6. PARACETAMOL [Concomitant]
     Active Substance: ACETAMINOPHEN
     Indication: PRODUCT USED FOR UNKNOWN INDICATION
     Route: 048
  7. BUPRENORPHINE. [Suspect]
     Active Substance: BUPRENORPHINE
     Indication: NECK PAIN
     Route: 002
     Dates: start: 201911
  8. DIMETHYL FUMARATE [Concomitant]
     Active Substance: DIMETHYL FUMARATE
     Indication: MULTIPLE SCLEROSIS
     Dosage: 2 TIMES A DAY; ONE IN THE MORNING AND ONE IN THE NIGHT
     Route: 048
  9. BUPRENORPHINE. [Suspect]
     Active Substance: BUPRENORPHINE
     Route: 002
     Dates: start: 20200204
  10. BUPRENORPHINE. [Suspect]
     Active Substance: BUPRENORPHINE
     Route: 002

REACTIONS (1)
  - Drug ineffective [Not Recovered/Not Resolved]

NARRATIVE: CASE EVENT DATE: 201911
